FAERS Safety Report 8908948 (Version 4)
Quarter: 2013Q4

REPORT INFORMATION
  Report Type: Report from Study
  Country: JP (occurrence: JP)
  Receive Date: 20121114
  Receipt Date: 20131211
  Transmission Date: 20140711
  Serious: Yes (Death, Other)
  Sender: FDA-Public Use
  Company Number: JP-VERTEX PHARMACEUTICAL INC.-2012-024392

PATIENT
  Age: 49 Year
  Sex: Male

DRUGS (13)
  1. VX-950 (TELAPREVIR) [Suspect]
     Indication: CHRONIC HEPATITIS C
     Dosage: 1500 MG, QD
     Route: 048
     Dates: start: 20120724, end: 20120726
  2. VX-950 (TELAPREVIR) [Suspect]
     Dosage: 1000 MG, QD
     Route: 048
     Dates: start: 20120727, end: 20120729
  3. VX-950 (TELAPREVIR) [Suspect]
     Dosage: 500 MG, QD
     Route: 048
     Dates: start: 20120730, end: 20120807
  4. RIBAVIRIN [Suspect]
     Indication: CHRONIC HEPATITIS C
     Dosage: 800 MG, QD
     Route: 048
     Dates: start: 20120724, end: 20120726
  5. RIBAVIRIN [Suspect]
     Dosage: 400 MG, QD
     Route: 048
     Dates: start: 20120727, end: 20120730
  6. RIBAVIRIN [Suspect]
     Dosage: 200 MG, QD
     Route: 048
     Dates: start: 20120731, end: 20120801
  7. RIBAVIRIN [Suspect]
     Dosage: 400 MG, QD
     Route: 048
     Dates: start: 20120807, end: 20120904
  8. PEGINTERFERON ALFA-2B [Suspect]
     Indication: CHRONIC HEPATITIS C
     Dosage: 1.5 ?G/KG,
     Route: 058
     Dates: start: 20120724, end: 20120730
  9. PEGINTERFERON ALFA-2B [Suspect]
     Dosage: 0.9 ?G/KG,
     Route: 058
     Dates: start: 20120807, end: 20120821
  10. PEGINTERFERON ALFA-2B [Suspect]
     Dosage: 0.8 ?G/KG
     Route: 058
     Dates: start: 20120822, end: 20120904
  11. URSO [Concomitant]
     Dosage: 300 MG, QD
     Route: 048
     Dates: start: 20120904, end: 20121105
  12. URSO [Concomitant]
     Dosage: 600 UNK, UNK
     Route: 048
     Dates: start: 20121106, end: 20121227
  13. SOLYUGEN [Concomitant]
     Dosage: 500 ML, UNK
     Route: 051
     Dates: start: 20121227, end: 20121227

REACTIONS (3)
  - Completed suicide [Fatal]
  - Hallucination [Recovered/Resolved]
  - Chest pain [Recovered/Resolved]
